FAERS Safety Report 11820601 (Version 1)
Quarter: 2015Q4

REPORT INFORMATION
  Report Type: Spontaneous
  Country: HU (occurrence: HU)
  Receive Date: 20151210
  Receipt Date: 20151210
  Transmission Date: 20160305
  Serious: Yes (Other)
  Sender: FDA-Public Use
  Company Number: HU-ACTAVIS-2015-26765

PATIENT
  Age: 33 Year
  Sex: Female

DRUGS (1)
  1. LEVOSERT [Suspect]
     Active Substance: LEVONORGESTREL
     Indication: PRODUCT USED FOR UNKNOWN INDICATION
     Dosage: UNK, UNKNOWN
     Route: 015
     Dates: start: 20150622

REACTIONS (2)
  - Uterine haemorrhage [Unknown]
  - Menstrual disorder [Unknown]
